FAERS Safety Report 4489675-9 (Version None)
Quarter: 2004Q4

REPORT INFORMATION
  Report Type: 
  Country: None (occurrence: None)
  Receive Date: 20041101
  Receipt Date: 20041022
  Transmission Date: 20050328
  Serious: Yes (Other)
  Sender: FDA-Public Use
  Company Number: PHHO2004CA15092

PATIENT
  Age: 50 Year
  Sex: Female
  Weight: 49 kg

DRUGS (10)
  1. ZELNORM [Suspect]
     Indication: IRRITABLE BOWEL SYNDROME
     Dosage: 6 MG, BID
     Route: 048
     Dates: start: 20030131
  2. TOLTERODINE TARTRATE [Suspect]
     Indication: INTESTINAL SPASM
     Dosage: 100 MG/DAY
  3. AMANTADINE HCL [Concomitant]
  4. ANDRIOL [Concomitant]
  5. WELLBUTRIN [Concomitant]
  6. TRAZODONE HCL [Concomitant]
  7. PROMETRIUM [Concomitant]
  8. PLAQUENIL [Concomitant]
  9. DDAVP [Concomitant]
  10. ANUSOL HC [Concomitant]

REACTIONS (2)
  - HAEMORRHOIDS [None]
  - THERAPEUTIC PROCEDURE [None]
